FAERS Safety Report 15278740 (Version 4)
Quarter: 2018Q3

REPORT INFORMATION
  Report Type: Report from Study
  Country: PL (occurrence: PL)
  Receive Date: 20180815
  Receipt Date: 20180905
  Transmission Date: 20181010
  Serious: Yes (Other)
  Sender: FDA-Public Use
  Company Number: PL-ROCHE-2165741

PATIENT
  Age: 56 Year
  Sex: Female
  Weight: 60 kg

DRUGS (17)
  1. OCRELIZUMAB. [Suspect]
     Active Substance: OCRELIZUMAB
     Dosage: SUBSEQUENT DOSE RECEIVED ON: 10/NOV/2015 (CYCLE 7, WEEK 48), 19/APR/2016 (CYCLE 8, WEEK 72), 11/OCT/
     Route: 042
     Dates: start: 20150519
  2. PARACETAMOL [Concomitant]
     Active Substance: ACETAMINOPHEN
     Indication: INFLUENZA
     Route: 048
     Dates: start: 20160328, end: 20160403
  3. PARACETAMOL [Concomitant]
     Active Substance: ACETAMINOPHEN
     Indication: NASOPHARYNGITIS
     Route: 048
     Dates: start: 20180501, end: 20180503
  4. ALERTEC (MODAFINIL) [Concomitant]
     Indication: PROPHYLAXIS
     Route: 048
     Dates: start: 20150519
  5. INTERFERON BETA?1A [Suspect]
     Active Substance: INTERFERON BETA-1A
     Indication: RELAPSING-REMITTING MULTIPLE SCLEROSIS
     Route: 058
     Dates: start: 20130128
  6. OCRELIZUMAB. [Suspect]
     Active Substance: OCRELIZUMAB
     Indication: RELAPSING-REMITTING MULTIPLE SCLEROSIS
     Dosage: SUBSEQUENT DOSE RECEIVED ON 18/DEC/2014 (WEEK 2, DAY 15 CYCLE 5).?DUAL INFUSIONS SEPARATED BY 14 DAY
     Route: 042
     Dates: start: 20141204
  7. METHYLPREDNISOLONE. [Concomitant]
     Active Substance: METHYLPREDNISOLONE
     Dosage: SUBSEQUENT DOSE RECEIVED ON: 12/FEB/2012, 12/JUN/2013, 07/JAN/2014, 17/JUN/2014, 04/DEC/2014, 18/DEC
     Route: 065
     Dates: start: 20130128
  8. MIANSERIN [Concomitant]
     Active Substance: MIANSERIN
     Indication: INSOMNIA
     Route: 048
     Dates: start: 20180129
  9. PLACEBO [Suspect]
     Active Substance: UNSPECIFIED INGREDIENT
     Indication: RELAPSING-REMITTING MULTIPLE SCLEROSIS
     Dosage: SUBSEQUENT DOSE RECEIVED ON 12/FEB/2013 (DAY 15, CYCLE 1, WEEK 2).?TWO INTRAVENOUS INFUSIONS SEPARAT
     Route: 042
     Dates: start: 20130128
  10. PLACEBO [Suspect]
     Active Substance: UNSPECIFIED INGREDIENT
     Dosage: SUBSEQUENT DOSE RECEIVED ON: 07/JAN/2014 (CYCLE 3, WEEK 48) AND 17/JUN/2014 (CYCLE 4, WEEK 72).
     Route: 042
     Dates: start: 20130712, end: 20140617
  11. LORAZEPAMUM [Concomitant]
     Indication: INSOMNIA
     Route: 048
     Dates: start: 20180129
  12. PARACETAMOL [Concomitant]
     Active Substance: ACETAMINOPHEN
     Dosage: SUBSEQUENT DOSE RECEIVED ON: 12/FEB/2012, 12/JUN/2013, 07/JAN/2014, 17/JUN/2014, 04/DEC/2014, 18/DEC
     Route: 065
     Dates: start: 20130128
  13. METYPRED [Concomitant]
     Active Substance: METHYLPREDNISOLONE
     Indication: MULTIPLE SCLEROSIS
     Route: 048
     Dates: start: 20121012, end: 20121019
  14. ALERTEC (MODAFINIL) [Concomitant]
     Route: 065
     Dates: start: 20140107
  15. SOLU?MEDROL [Concomitant]
     Active Substance: METHYLPREDNISOLONE SODIUM SUCCINATE
     Indication: MULTIPLE SCLEROSIS RELAPSE
     Route: 042
     Dates: start: 20121009, end: 20121012
  16. CETIRIZIN [Concomitant]
     Active Substance: CETIRIZINE HYDROCHLORIDE
     Dosage: SUBSEQUENT DOSE RECEIVED ON: 07/JAN/2014, 17/JUN/2014, 04/DEC/2014, 18/DEC/2014, 19/MAY/2015, 10/NOV
     Route: 065
     Dates: start: 20130612
  17. INTERFERON BETA?1A [Suspect]
     Active Substance: INTERFERON BETA-1A
     Route: 058
     Dates: start: 20141201, end: 20141203

REACTIONS (1)
  - Squamous cell carcinoma of the cervix [Not Recovered/Not Resolved]

NARRATIVE: CASE EVENT DATE: 20180801
